FAERS Safety Report 21385846 (Version 4)
Quarter: 2022Q4

REPORT INFORMATION
  Report Type: Spontaneous
  Country: US (occurrence: US)
  Receive Date: 20220928
  Receipt Date: 20221012
  Transmission Date: 20230113
  Serious: No
  Sender: FDA-Public Use
  Company Number: US-PFIZER INC-PV202200071339

PATIENT
  Age: 52 Year
  Sex: Female

DRUGS (6)
  1. IBRANCE [Suspect]
     Active Substance: PALBOCICLIB
     Indication: Breast cancer female
     Dosage: DAILY ON DAYS 1 THROUGH 21 OF A 28 DAY TREATMENT CYCLE
     Route: 048
     Dates: start: 20220917, end: 202209
  2. ALUMINUM CHLOROHYDRATE [Concomitant]
     Active Substance: ALUMINUM CHLOROHYDRATE
     Dosage: UNK
  3. DOCUSATE SOD [Concomitant]
     Dosage: 100 MG
  4. FASLODEX [Concomitant]
     Active Substance: FULVESTRANT
     Dosage: UNK (250/5ML)
  5. OMEPRAZOLE [Concomitant]
     Active Substance: OMEPRAZOLE
     Dosage: 40 MG
  6. TRAMADOL HCL [Concomitant]
     Active Substance: TRAMADOL HYDROCHLORIDE
     Dosage: 50 MG

REACTIONS (4)
  - Constipation [Not Recovered/Not Resolved]
  - Diarrhoea [Not Recovered/Not Resolved]
  - Vomiting [Unknown]
  - Enzyme level increased [Recovered/Resolved]

NARRATIVE: CASE EVENT DATE: 20220901
